FAERS Safety Report 20802652 (Version 1)
Quarter: 2022Q2

REPORT INFORMATION
  Report Type: Spontaneous
  Country: US (occurrence: None)
  Receive Date: 20220509
  Receipt Date: 20220509
  Transmission Date: 20220720
  Serious: Yes (Death)
  Sender: FDA-Public Use
  Company Number: None

PATIENT
  Age: 79 Year
  Sex: Male

DRUGS (1)
  1. APIXABAN [Suspect]
     Active Substance: APIXABAN
     Dates: start: 20220313

REACTIONS (3)
  - Mental impairment [None]
  - Gait disturbance [None]
  - Cerebral haemorrhage [None]

NARRATIVE: CASE EVENT DATE: 20220326
